FAERS Safety Report 17910494 (Version 3)
Quarter: 2020Q3

REPORT INFORMATION
  Report Type: Report from Study
  Country: FR (occurrence: FR)
  Receive Date: 20200618
  Receipt Date: 20200716
  Transmission Date: 20201103
  Serious: Yes (Death, Hospitalization, Other)
  Sender: FDA-Public Use
  Company Number: FR-BRISTOL-MYERS SQUIBB COMPANY-BMS-2020-046328

PATIENT
  Age: 72 Year
  Sex: Male
  Weight: 90 kg

DRUGS (5)
  1. NIVOLUMAB [Suspect]
     Active Substance: NIVOLUMAB
     Indication: RENAL CELL CARCINOMA
     Dosage: 270 MILLIGRAM, CYCLE 38
     Route: 042
     Dates: start: 20170706, end: 20200522
  2. LOXEN [NICARDIPINE HYDROCHLORIDE] [Concomitant]
     Active Substance: NICARDIPINE HYDROCHLORIDE
     Indication: HYPERTENSION
     Dosage: UNK
     Route: 065
     Dates: start: 20180320
  3. METFORMIN HYDROCHLORIDE. [Suspect]
     Active Substance: METFORMIN HYDROCHLORIDE
     Indication: DIABETES MELLITUS
     Dosage: 500 MILLIGRAM
     Route: 048
     Dates: start: 20191010
  4. NOVORAPID [Concomitant]
     Active Substance: INSULIN ASPART
     Indication: DIABETES MELLITUS
     Dosage: 100 ^U/ML^
     Route: 058
     Dates: start: 20170901
  5. TOUJEO [Concomitant]
     Active Substance: INSULIN GLARGINE
     Indication: DIABETES MELLITUS
     Dosage: 300 ^U/ML^
     Route: 058
     Dates: start: 20170920

REACTIONS (1)
  - Metabolic acidosis [Fatal]

NARRATIVE: CASE EVENT DATE: 20200531
